FAERS Safety Report 8513172-4 (Version None)
Quarter: 2012Q3

REPORT INFORMATION
  Report Type: 
  Country: None (occurrence: None)
  Receive Date: 20120716
  Receipt Date: 20120710
  Transmission Date: 20120928
  Serious: Yes (Hospitalization, Other)
  Sender: FDA-Public Use
  Company Number: US-PFIZER INC-2012033204

PATIENT
  Sex: Female

DRUGS (5)
  1. REBIF [Suspect]
     Indication: MULTIPLE SCLEROSIS
     Dosage: 44 MCG, 3 IN 1 WEEK
     Route: 058
     Dates: start: 20100106, end: 20110401
  2. REBIF [Suspect]
     Dosage: 22 MCG, 3 IN 1 WEEK
     Route: 058
     Dates: start: 20110401, end: 20110101
  3. TEGRETOL [Concomitant]
  4. LIPITOR [Suspect]
     Dosage: UNK
     Dates: end: 20110201
  5. SIMVASTATIN [Suspect]
     Indication: BLOOD CHOLESTEROL INCREASED
     Dosage: UNK
     Dates: end: 20110201

REACTIONS (4)
  - MULTIPLE SCLEROSIS RELAPSE [None]
  - HEPATIC ENZYME INCREASED [None]
  - HEPATIC FIBROSIS [None]
  - INJECTION SITE REACTION [None]
